FAERS Safety Report 5871134-X (Version None)
Quarter: 2008Q3

REPORT INFORMATION
  Report Type: 
  Country: None (occurrence: None)
  Receive Date: 20080904
  Receipt Date: 20080825
  Transmission Date: 20090109
  Serious: Yes (Hospitalization)
  Sender: FDA-Public Use
  Company Number: DE-ABBOTT-08P-062-0472640-00

PATIENT
  Sex: Female
  Weight: 72 kg

DRUGS (9)
  1. HUMIRA [Suspect]
     Indication: RHEUMATOID ARTHRITIS
     Route: 058
     Dates: start: 20070701, end: 20080801
  2. LEFLUNOMIDE [Suspect]
     Indication: RHEUMATOID ARTHRITIS
     Route: 048
     Dates: start: 20070801, end: 20080801
  3. METOPROLOL SUCCINATE [Concomitant]
     Indication: HYPERTENSION
     Route: 048
  4. VORUM [Concomitant]
     Indication: HYPERTENSION
     Route: 048
     Dates: start: 20080201
  5. HYDROCHLOROTHIAZIDE [Concomitant]
     Indication: HYPERTENSION
     Route: 048
  6. ACETYLSALICYLIC ACID SRT [Concomitant]
     Indication: THROMBOSIS PROPHYLAXIS
     Route: 048
  7. ESOMEPRAZOLE MAGNESIUM [Concomitant]
     Indication: GASTRIC ULCER
     Route: 048
     Dates: start: 20080201
  8. ACETAMINOPHEN [Concomitant]
     Indication: ARTHRITIS
     Route: 048
  9. ESOMEPRAZOLE [Concomitant]
     Indication: DRUG USE FOR UNKNOWN INDICATION

REACTIONS (3)
  - ABDOMINAL PAIN UPPER [None]
  - GASTRIC ULCER [None]
  - GASTRITIS [None]
